FAERS Safety Report 16114463 (Version 1)
Quarter: 2019Q1

REPORT INFORMATION
  Report Type: Spontaneous
  Country: US (occurrence: US)
  Receive Date: 20190325
  Receipt Date: 20190325
  Transmission Date: 20190418
  Serious: Yes (Hospitalization, Other)
  Sender: FDA-Public Use
  Company Number: US-BAYER-2019-053225

PATIENT
  Age: 62 Year
  Sex: Female

DRUGS (8)
  1. FUROSEMIDE. [Concomitant]
     Active Substance: FUROSEMIDE
     Indication: POLYURIA
     Route: 040
  2. LOSARTAN. [Suspect]
     Active Substance: LOSARTAN
  3. ALKA-SELTZER HEARTBURN RELIEFCHEWS [Suspect]
     Active Substance: CALCIUM CARBONATE
     Indication: RHABDOMYOLYSIS
     Dosage: 2500 MG, UNK
     Route: 048
  4. SODIUM CHLORIDE. [Concomitant]
     Active Substance: SODIUM CHLORIDE
     Indication: HYPOCALCAEMIA
  5. CALCITRIOL. [Suspect]
     Active Substance: CALCITRIOL
     Indication: RHABDOMYOLYSIS
     Dosage: .5 MG, UNK
     Route: 048
  6. TACROLIMUS. [Concomitant]
     Active Substance: TACROLIMUS
     Indication: IMMUNOSUPPRESSION
  7. LEVOTHYROXINE. [Concomitant]
     Active Substance: LEVOTHYROXINE
  8. MYCOPHENOLATE MOFETIL. [Concomitant]
     Active Substance: MYCOPHENOLATE MOFETIL
     Indication: IMMUNOSUPPRESSION

REACTIONS (9)
  - Milk-alkali syndrome [Unknown]
  - Labelled drug-disease interaction medication error [None]
  - Hypervitaminosis D [Unknown]
  - Contraindicated product administered [None]
  - Urinary tract infection [Unknown]
  - Nephrolithiasis [Unknown]
  - Hypercalcaemia [Recovered/Resolved]
  - Acute kidney injury [Unknown]
  - Renal tubular necrosis [Unknown]
